FAERS Safety Report 20906820 (Version 2)
Quarter: 2022Q2

REPORT INFORMATION
  Report Type: Spontaneous
  Country: JP (occurrence: JP)
  Receive Date: 20220602
  Receipt Date: 20220624
  Transmission Date: 20220720
  Serious: Yes (Hospitalization, Other)
  Sender: FDA-Public Use
  Company Number: JP-JAZZ-2022-JP-018489

PATIENT
  Age: 14 Year
  Sex: Male
  Weight: 51.8 kg

DRUGS (2)
  1. DEFITELIO [Suspect]
     Active Substance: DEFIBROTIDE SODIUM
     Indication: Venoocclusive liver disease
     Dosage: 25 MILLIGRAM/KILOGRAM
     Route: 042
     Dates: start: 20210818, end: 20210902
  2. METHYLPREDNISOLONE [Concomitant]
     Active Substance: METHYLPREDNISOLONE
     Indication: Product used for unknown indication
     Dosage: UNK
     Dates: start: 20210818

REACTIONS (3)
  - Graft versus host disease in skin [Recovering/Resolving]
  - Graft versus host disease in gastrointestinal tract [Recovering/Resolving]
  - Graft versus host disease in liver [Recovering/Resolving]

NARRATIVE: CASE EVENT DATE: 20210902
